FAERS Safety Report 22666987 (Version 4)
Quarter: 2023Q4

REPORT INFORMATION
  Report Type: Report from Study
  Country: US (occurrence: US)
  Receive Date: 20230704
  Receipt Date: 20231023
  Transmission Date: 20240110
  Serious: No
  Sender: FDA-Public Use
  Company Number: US-ACADIA PHARMACEUTICALS INC.-ACA-2023-TRF-002329

PATIENT
  Age: 10 Year
  Sex: Female

DRUGS (11)
  1. DAYBUE [Suspect]
     Active Substance: TROFINETIDE
     Indication: Rett syndrome
     Dosage: 60 MILLILITER, BID
     Route: 048
     Dates: start: 20230607, end: 20230926
  2. TOPIRAMATE [Suspect]
     Active Substance: TOPIRAMATE
     Dosage: UNK
  3. TOPIRAMATE [Suspect]
     Active Substance: TOPIRAMATE
     Dosage: DOSE INCREASED
  4. GABAPENTIN [Concomitant]
     Active Substance: GABAPENTIN
     Dosage: UNK, BID
  5. NYSTATIN [Concomitant]
     Active Substance: NYSTATIN
  6. TYLENOL [Concomitant]
     Active Substance: ACETAMINOPHEN
  7. IBUPROFEN [Concomitant]
     Active Substance: IBUPROFEN
  8. VALTOCO [Concomitant]
     Active Substance: DIAZEPAM
  9. TUMS [Concomitant]
     Active Substance: CALCIUM CARBONATE
  10. VITAMINS [Concomitant]
     Active Substance: VITAMINS
  11. TOPIRAMATE [Concomitant]
     Active Substance: TOPIRAMATE

REACTIONS (15)
  - Dyschezia [Unknown]
  - Drug ineffective [Unknown]
  - Emotional distress [Not Recovered/Not Resolved]
  - Mood altered [Not Recovered/Not Resolved]
  - Product use complaint [Not Recovered/Not Resolved]
  - Constipation [Recovered/Resolved]
  - Product formulation issue [Unknown]
  - Drug ineffective [Unknown]
  - Gastrointestinal motility disorder [Unknown]
  - Abnormal menstrual clots [Unknown]
  - Heavy menstrual bleeding [Unknown]
  - Sluggishness [Not Recovered/Not Resolved]
  - Diarrhoea [Not Recovered/Not Resolved]
  - Diarrhoea [Not Recovered/Not Resolved]
  - Fatigue [Not Recovered/Not Resolved]

NARRATIVE: CASE EVENT DATE: 20230609
